FAERS Safety Report 6263389-7 (Version None)
Quarter: 2009Q3

REPORT INFORMATION
  Report Type: 
  Country: None (occurrence: None)
  Receive Date: 20090710
  Receipt Date: 20080925
  Transmission Date: 20100115
  Serious: Yes (Other)
  Sender: FDA-Public Use
  Company Number: A0749451A

PATIENT
  Age: 65 Year
  Sex: Male

DRUGS (4)
  1. FLOVENT [Suspect]
     Indication: ASTHMA
     Dosage: 2PUFF PER DAY
     Route: 055
     Dates: start: 20030101
  2. COZAAR [Concomitant]
  3. LOPRESSOR [Concomitant]
  4. ALBUTEROL [Concomitant]
     Indication: ASTHMA

REACTIONS (3)
  - ASTHMA [None]
  - COUGH [None]
  - INCREASED UPPER AIRWAY SECRETION [None]
